FAERS Safety Report 5961466-9 (Version None)
Quarter: 2008Q4

REPORT INFORMATION
  Report Type: 
  Country: None (occurrence: None)
  Receive Date: 20081121
  Receipt Date: 20081117
  Transmission Date: 20090506
  Serious: Yes (Other)
  Sender: FDA-Public Use
  Company Number: US-BAYER-200811472BCC

PATIENT
  Age: 81 Year
  Sex: Male
  Weight: 73 kg

DRUGS (6)
  1. ALEVE [Suspect]
     Indication: ARTHRALGIA
     Dosage: TOTAL DAILY DOSE: 440 MG  UNIT DOSE: 220 MG
     Route: 048
     Dates: start: 20080325, end: 20080413
  2. ASPIRIN [Suspect]
     Indication: PROPHYLAXIS
     Dosage: TOTAL DAILY DOSE: 81 MG  UNIT DOSE: 81 MG
     Route: 048
     Dates: start: 19880101
  3. LISINOPRIL [Concomitant]
  4. SIMVASTATIN [Concomitant]
  5. PROSTATE PILLS NOS [Concomitant]
  6. HYTRIN [Concomitant]

REACTIONS (4)
  - BLOOD PRESSURE INCREASED [None]
  - ERYTHEMA [None]
  - FEELING ABNORMAL [None]
  - SWELLING FACE [None]
